FAERS Safety Report 7951444-2 (Version None)
Quarter: 2011Q4

REPORT INFORMATION
  Report Type: 
  Country: None (occurrence: None)
  Receive Date: 20111201
  Receipt Date: 20111123
  Transmission Date: 20120403
  Serious: Yes (Hospitalization)
  Sender: FDA-Public Use
  Company Number: DE-ABBOTT-11P-062-0877338-00

PATIENT
  Sex: Female

DRUGS (4)
  1. ALLOPURINOL [Concomitant]
     Indication: PRODUCT USED FOR UNKNOWN INDICATION
  2. NATRIUMHYDROGENCARBONAT [Concomitant]
     Indication: PRODUCT USED FOR UNKNOWN INDICATION
  3. INSULIN [Concomitant]
     Indication: PRODUCT USED FOR UNKNOWN INDICATION
  4. HUMIRA [Suspect]
     Indication: CROHN'S DISEASE
     Route: 058
     Dates: start: 20111108

REACTIONS (1)
  - INFLAMMATORY MARKER INCREASED [None]
